FAERS Safety Report 6100522-1 (Version None)
Quarter: 2009Q1

REPORT INFORMATION
  Report Type: 
  Country: None (occurrence: None)
  Receive Date: 20090227
  Receipt Date: 20090227
  Transmission Date: 20090719
  Serious: Yes (Hospitalization)
  Sender: FDA-Public Use
  Company Number: None

PATIENT
  Sex: Female
  Weight: 77 kg

DRUGS (10)
  1. AVASTIN [Suspect]
     Indication: GLIOBLASTOMA
     Dosage: 1157 MG Q3WKS IV
     Route: 042
     Dates: start: 20090105
  2. KEPPRA [Concomitant]
  3. CELEXA [Concomitant]
  4. VASOTEC [Concomitant]
  5. DECADRON [Concomitant]
  6. NIFEDIPINE [Concomitant]
  7. LYRICA [Concomitant]
  8. LOPRESSOR [Concomitant]
  9. HYDRALAZINE HCL [Concomitant]
  10. DILANTIN [Concomitant]

REACTIONS (2)
  - FALL [None]
  - HIP FRACTURE [None]
